FAERS Safety Report 18544659 (Version 3)
Quarter: 2020Q4

REPORT INFORMATION
  Report Type: Spontaneous
  Country: FR (occurrence: FR)
  Receive Date: 20201125
  Receipt Date: 20201225
  Transmission Date: 20210114
  Serious: Yes (Hospitalization, Other)
  Sender: FDA-Public Use
  Company Number: FR-AMGEN-FRASP2020187719

PATIENT
  Age: 48 Year
  Sex: Female

DRUGS (14)
  1. NOVATREX (AZITHROMYCIN) [Concomitant]
     Active Substance: AZITHROMYCIN DIHYDRATE
     Dosage: UNK
     Dates: end: 20200814
  2. REPEVAX [Concomitant]
     Active Substance: DIPHTHERIA AND TETANUS TOXOIDS AND ACELLULAR PERTUSSIS ADSORBED AND INACTIVATED POLIOVIRUS VACCINE
  3. IMETH [METHOTREXATE] [Concomitant]
     Active Substance: METHOTREXATE
     Dosage: 15 MILLIGRAM, QWK
  4. BIPROFENID [Concomitant]
     Active Substance: KETOPROFEN
     Dosage: 100 MILLIGRAM, BID
  5. PREVNAR 13 [Concomitant]
     Active Substance: PNEUMOCOCCAL 13-VALENT CONJUGATE VACCINE
     Dosage: UNK
  6. AMGEVITA [Suspect]
     Active Substance: ADALIMUMAB
     Indication: SERONEGATIVE ARTHRITIS
     Dosage: 40 MILLIGRAM
     Route: 058
     Dates: start: 20190905
  7. KETOPROFENE [KETOPROFEN LYSINE] [Concomitant]
     Active Substance: KETOPROFEN LYSINE
     Dosage: 100 MILLIGRAM, QD
  8. ACUPAN [Concomitant]
     Active Substance: NEFOPAM HYDROCHLORIDE
     Dosage: UNK
  9. SPECIAFOLDINE [Concomitant]
     Active Substance: FOLIC ACID
     Dosage: 5 MILLIGRAM, QWK
  10. RAMIPRIL. [Concomitant]
     Active Substance: RAMIPRIL
     Indication: HYPERTENSION
     Dosage: 5 MILLIGRAM, QD
  11. IMETH [METHOTREXATE] [Concomitant]
     Active Substance: METHOTREXATE
     Dosage: 12.5 MILLIGRAM, QWK
     Dates: start: 201905
  12. IMETH [METHOTREXATE] [Concomitant]
     Active Substance: METHOTREXATE
     Dosage: 10 MILLIGRAM, QWK
     Dates: start: 20190414
  13. METFORMIN [Concomitant]
     Active Substance: METFORMIN HYDROCHLORIDE
     Indication: TYPE 2 DIABETES MELLITUS
     Dosage: 500 MILLIGRAM, TID
  14. OMEPRAZOLE. [Concomitant]
     Active Substance: OMEPRAZOLE
     Dosage: 20 MILLIGRAM, QD

REACTIONS (6)
  - Renal colic [Recovered/Resolved]
  - Urinary tract infection [Recovered/Resolved]
  - Varicella [Unknown]
  - Unevaluable event [Unknown]
  - Measles [Unknown]
  - Middle insomnia [Unknown]

NARRATIVE: CASE EVENT DATE: 202008
